FAERS Safety Report 8586239-2 (Version None)
Quarter: 2012Q3

REPORT INFORMATION
  Report Type: 
  Country: None (occurrence: None)
  Receive Date: 20120810
  Receipt Date: 20120806
  Transmission Date: 20120928
  Serious: Yes (Other)
  Sender: FDA-Public Use
  Company Number: PHHY2012BR068678

PATIENT
  Age: 82 Year
  Sex: Female
  Weight: 42 kg

DRUGS (6)
  1. EXELON [Suspect]
     Indication: CONFUSIONAL STATE
  2. EXELON [Suspect]
     Dosage: 4.5 ML, Q12H
     Route: 048
  3. EXELON [Suspect]
     Dosage: 2.5 ML, Q12H
     Route: 048
  4. EXELON [Suspect]
     Indication: DEMENTIA ALZHEIMER'S TYPE
     Dosage: 13.3 MG, ONE PATCH PER DAY
     Route: 062
  5. EXELON [Suspect]
     Dosage: 6 ML, Q12H
     Route: 048
  6. PROPIL [Concomitant]
     Dosage: 1 DF, A DAY
     Route: 048

REACTIONS (3)
  - DELIRIUM [None]
  - APATHY [None]
  - CONFUSIONAL STATE [None]
